FAERS Safety Report 5019722-7 (Version None)
Quarter: 2006Q2

REPORT INFORMATION
  Report Type: 
  Country: None (occurrence: None)
  Receive Date: 20060601
  Receipt Date: 20060522
  Transmission Date: 20061013
  Serious: Yes (Life-Threatening, Hospitalization)
  Sender: FDA-Public Use
  Company Number: 2006067559

PATIENT
  Age: 69 Year
  Sex: Male

DRUGS (10)
  1. PREDNISOLONE [Suspect]
     Indication: RENAL TRANSPLANT
     Dosage: 5 MG 5 MG, 1 IN 1 D), ORAL
     Route: 048
  2. CLOPIDOGREL [Suspect]
     Indication: MYOCARDIAL ISCHAEMIA
     Dosage: 75 MG (75 MG, 1 IN 1 D), ORAL
     Route: 048
     Dates: start: 20060101, end: 20060215
  3. ASPIRIN [Suspect]
     Indication: MYOCARDIAL ISCHAEMIA
     Dosage: 75 MG (75 MG, 1 IN 1 D), ORAL
     Route: 048
     Dates: start: 20010101, end: 20060215
  4. CYCLOSPORINE [Concomitant]
  5. AZATHIOPRINE [Concomitant]
  6. BENDROFLUMETHIAZIDE (BENDROFLUMETHIAZIDE) [Concomitant]
  7. DOXAZOSIN (DOXAZOSIN) [Concomitant]
  8. AMLODIPINE [Concomitant]
  9. NICORANDIL (NICORANDIL) [Concomitant]
  10. DILTIAZEM [Concomitant]

REACTIONS (7)
  - BLOOD UREA INCREASED [None]
  - GASTROINTESTINAL HAEMORRHAGE [None]
  - HAEMATEMESIS [None]
  - HAEMOGLOBIN DECREASED [None]
  - HYPERTENSION [None]
  - MELAENA [None]
  - MYOCARDIAL ISCHAEMIA [None]
